FAERS Safety Report 8490119-0 (Version None)
Quarter: 2012Q3

REPORT INFORMATION
  Report Type: 
  Country: None (occurrence: None)
  Receive Date: 20120705
  Receipt Date: 20120625
  Transmission Date: 20120928
  Serious: Yes (Life-Threatening, Hospitalization, Other)
  Sender: FDA-Public Use
  Company Number: US-SHIONOGI, INC-2012000203

PATIENT
  Age: 31 Year
  Sex: Male

DRUGS (3)
  1. DULOXETIME HYDROCHLORIDE [Concomitant]
     Dosage: 60 MG, QD
  2. RISPERIDONE [Concomitant]
     Dosage: UNK, QD
  3. TRAMADOL HYDROCHLORIDE [Suspect]
     Dosage: 50 MG, UNK

REACTIONS (5)
  - DRUG SCREEN FALSE POSITIVE [None]
  - TOXICITY TO VARIOUS AGENTS [None]
  - GRAND MAL CONVULSION [None]
  - SUICIDE ATTEMPT [None]
  - TACHYCARDIA [None]
